FAERS Safety Report 10279993 (Version 2)
Quarter: 2014Q3

REPORT INFORMATION
  Report Type: Spontaneous
  Country: NL (occurrence: NL)
  Receive Date: 20140707
  Receipt Date: 20140909
  Transmission Date: 20150326
  Serious: Yes (Other)
  Sender: FDA-Public Use
  Company Number: NL-JNJFOC-20140616533

PATIENT
  Sex: Male

DRUGS (6)
  1. CISORDINOL [Interacting]
     Active Substance: ZUCLOPENTHIXOL
     Indication: PSYCHOTIC DISORDER
     Dosage: CONC 500 MG/ML AMPULEW 1 ML
     Route: 014
     Dates: start: 2002, end: 2012
  2. RISPERDAL [Suspect]
     Active Substance: RISPERIDONE
     Indication: PSYCHOTIC DISORDER
     Route: 050
     Dates: start: 2002
  3. LITHIUM CARBONATE. [Interacting]
     Active Substance: LITHIUM CARBONATE
     Indication: PSYCHOTIC DISORDER
     Route: 050
     Dates: start: 2002
  4. LORAZEPAM. [Concomitant]
     Active Substance: LORAZEPAM
     Indication: PRODUCT USED FOR UNKNOWN INDICATION
     Route: 048
     Dates: start: 2002
  5. BARIUM SULFATE [Interacting]
     Active Substance: BARIUM SULFATE
     Indication: PSYCHOTIC DISORDER
     Route: 050
     Dates: start: 2002
  6. TRANXENE T-TAB [Interacting]
     Active Substance: CLORAZEPATE DIPOTASSIUM
     Indication: POST-TRAUMATIC STRESS DISORDER
     Dosage: FLACON 50 MG+SOLV 2,5ML
     Route: 030
     Dates: start: 2002

REACTIONS (4)
  - Cluster headache [Unknown]
  - Tardive dyskinesia [Unknown]
  - Brain injury [Not Recovered/Not Resolved]
  - Drug interaction [Unknown]

NARRATIVE: CASE EVENT DATE: 2002
